FAERS Safety Report 5281112-X (Version None)
Quarter: 2007Q1

REPORT INFORMATION
  Report Type: 
  Country: None (occurrence: None)
  Receive Date: 20070323
  Receipt Date: 20070305
  Transmission Date: 20070707
  Serious: Yes (Death)
  Sender: FDA-Public Use
  Company Number: 144-C5013-07031123

PATIENT
  Age: 74 Year
  Sex: Female
  Weight: 60 kg

DRUGS (6)
  1. CC-5013 (LENALIDOMIDE) (CAPSULES) [Suspect]
     Indication: MYELODYSPLASTIC SYNDROME
     Dosage: 10 MG, 21/28, ORAL
     Route: 048
     Dates: start: 20070119, end: 20070208
  2. DIAMBEN (METFORMIN) [Concomitant]
  3. GLYBURIDE [Concomitant]
  4. ISOSORBIDE (ISOSORBIDE) [Concomitant]
  5. ATENOLOL [Concomitant]
  6. OMEPRAZOLE [Concomitant]

REACTIONS (2)
  - INTESTINAL ISCHAEMIA [None]
  - MULTI-ORGAN FAILURE [None]
